FAERS Safety Report 4801442-2 (Version None)
Quarter: 2005Q4

REPORT INFORMATION
  Report Type: 
  Country: None (occurrence: None)
  Receive Date: 20051018
  Receipt Date: 20050816
  Transmission Date: 20060501
  Serious: Yes (Hospitalization)
  Sender: FDA-Public Use
  Company Number: US-BOEHRINGER INGELHEIM PHARMACEUTICALS, INC.-2005-BP-14215BP

PATIENT
  Age: 74 Year
  Sex: Female
  Weight: 78.47 kg

DRUGS (5)
  1. MOBIC [Suspect]
     Indication: ARTHRITIS
     Route: 048
     Dates: start: 20040101, end: 20050813
  2. HYDROCHLOROTHIAZIDE [Concomitant]
  3. PROCARDIA XL [Concomitant]
     Dates: start: 20050526
  4. TOPROL 50 [Concomitant]
  5. PRILOSEC [Concomitant]

REACTIONS (14)
  - ABDOMINAL HERNIA [None]
  - BLOOD CREATININE INCREASED [None]
  - DIVERTICULUM [None]
  - EOSINOPHILS URINE PRESENT [None]
  - HIATUS HERNIA [None]
  - MALAISE [None]
  - METABOLIC ACIDOSIS [None]
  - NEPHRITIS INTERSTITIAL [None]
  - PYREXIA [None]
  - REFUSAL OF TREATMENT BY PATIENT [None]
  - RENAL CYST [None]
  - RENAL FAILURE ACUTE [None]
  - RENAL TUBULAR NECROSIS [None]
  - WEIGHT DECREASED [None]
